FAERS Safety Report 7863331-9 (Version None)
Quarter: 2011Q4

REPORT INFORMATION
  Report Type: 
  Country: None (occurrence: None)
  Receive Date: 20111027
  Receipt Date: 20101202
  Transmission Date: 20120403
  Serious: No
  Sender: FDA-Public Use
  Company Number: US-AMGEN-USASP2010005561

PATIENT
  Age: 70 Year
  Sex: Female

DRUGS (4)
  1. ENBREL [Suspect]
     Indication: RHEUMATOID ARTHRITIS
     Dosage: 50 MG, QWK
     Route: 058
     Dates: start: 20101028
  2. ENBREL [Suspect]
     Dates: start: 20101001
  3. METHOTREXATE [Concomitant]
     Dosage: 1 MG, QWK
  4. METHOTREXATE [Concomitant]
     Dates: start: 20010101

REACTIONS (2)
  - THERAPEUTIC RESPONSE DECREASED [None]
  - ALOPECIA [None]
